FAERS Safety Report 4646679-0 (Version None)
Quarter: 2005Q2

REPORT INFORMATION
  Report Type: 
  Country: None (occurrence: None)
  Receive Date: 20050425
  Receipt Date: 20050411
  Transmission Date: 20051028
  Serious: Yes (Hospitalization)
  Sender: FDA-Public Use
  Company Number: 05P-167-0297068-00

PATIENT
  Age: 50 Year
  Sex: Female
  Weight: 65 kg

DRUGS (7)
  1. HUMIRA [Suspect]
     Indication: RHEUMATOID ARTHRITIS
     Dosage: 40 MG, 1 IN  2 WK, SUBCUTANEOUS
     Route: 058
     Dates: start: 20041114
  2. ESTROGENS CONJUGATED [Concomitant]
  3. INDOMETHACIN [Concomitant]
  4. PREDNISOLONE [Concomitant]
  5. ATENOLOL [Concomitant]
  6. ALENDRONATE SODIUM [Concomitant]
  7. GABAPENTIN [Concomitant]

REACTIONS (1)
  - DISLOCATION OF VERTEBRA [None]
